FAERS Safety Report 24239276 (Version 1)
Quarter: 2024Q3

REPORT INFORMATION
  Report Type: Spontaneous
  Country: PL (occurrence: PL)
  Receive Date: 20240822
  Receipt Date: 20240822
  Transmission Date: 20241017
  Serious: Yes (Life-Threatening)
  Sender: BAYER
  Company Number: None

PATIENT
  Age: 68 Year

DRUGS (1)
  1. ULTRAVIST [Suspect]
     Active Substance: IOPROMIDE
     Indication: Pulmonary imaging procedure abnormal
     Dosage: 70 ML, ONCE
     Route: 042
     Dates: start: 20200507, end: 20200507

REACTIONS (5)
  - Rash macular [Recovering/Resolving]
  - Syncope [Recovering/Resolving]
  - Urinary incontinence [Recovering/Resolving]
  - Hypersensitivity [Recovering/Resolving]
  - Blood pressure decreased [Recovering/Resolving]

NARRATIVE: CASE EVENT DATE: 20200507
